FAERS Safety Report 14923088 (Version 2)
Quarter: 2018Q4

REPORT INFORMATION
  Report Type: Report from Study
  Country: GB (occurrence: GB)
  Receive Date: 20180522
  Receipt Date: 20181123
  Transmission Date: 20190204
  Serious: Yes (Other)
  Sender: FDA-Public Use
  Company Number: PHHY2018GB002043

PATIENT
  Age: 61 Year
  Sex: Male

DRUGS (1)
  1. COSENTYX [Suspect]
     Active Substance: SECUKINUMAB
     Indication: PSORIASIS
     Dosage: 300 MG, QW (WEEK 0, 1, 2, 3 THEN MONTHLY AFTER WEEK 4 AS DIRECTED)
     Route: 058
     Dates: start: 20180510

REACTIONS (6)
  - Burning sensation [Recovered/Resolved]
  - Product prescribing issue [Unknown]
  - Feeling abnormal [Unknown]
  - Psoriasis [Unknown]
  - Diabetes mellitus [Unknown]
  - Cardiac disorder [Unknown]

NARRATIVE: CASE EVENT DATE: 20180510
